FAERS Safety Report 6587769-5 (Version None)
Quarter: 2010Q1

REPORT INFORMATION
  Report Type: 
  Country: None (occurrence: None)
  Receive Date: 20100218
  Receipt Date: 20100205
  Transmission Date: 20100710
  Serious: Yes (Hospitalization, Other)
  Sender: FDA-Public Use
  Company Number: PHHY2010JP02329

PATIENT
  Sex: Male
  Weight: 66 kg

DRUGS (7)
  1. DIOVAN [Suspect]
     Indication: HYPERTENSION
     Dosage: 40 MG, QD
     Route: 048
     Dates: start: 20081114, end: 20081208
  2. DIOVAN [Suspect]
     Dosage: 80 MG, QD
     Route: 048
     Dates: start: 20081209, end: 20090118
  3. DILTIAZEM HYDROCHLORIDE [Concomitant]
     Dosage: 200 MG
     Route: 048
  4. ITOROL [Concomitant]
     Dosage: 20 MG
     Route: 048
  5. TICLOPIDINE HCL [Concomitant]
     Dosage: 200 MG
     Route: 048
  6. ASPIRIN [Concomitant]
     Dosage: 200 MG
     Route: 048
  7. FRANDOL S [Concomitant]
     Dosage: 40 MG
     Route: 062

REACTIONS (3)
  - BLOOD PRESSURE SYSTOLIC INCREASED [None]
  - LUNG NEOPLASM MALIGNANT [None]
  - MALIGNANT PLEURAL EFFUSION [None]
